FAERS Safety Report 8328530-0 (Version None)
Quarter: 2012Q2

REPORT INFORMATION
  Report Type: 
  Country: None (occurrence: None)
  Receive Date: 20120430
  Receipt Date: 20120424
  Transmission Date: 20120825
  Serious: Yes (Hospitalization)
  Sender: FDA-Public Use
  Company Number: 2012-001625

PATIENT
  Age: 83 Year
  Sex: Female

DRUGS (9)
  1. AMBIEN [Concomitant]
  2. LAMICTAL [Concomitant]
  3. HYDROCHLOROQUINE (HYDROCHLOROQUINE) [Concomitant]
  4. PAXIL [Concomitant]
  5. VITAMIN C /000080001/ (ASCORBIC ACID) [Concomitant]
  6. ATELVIA [Suspect]
     Indication: OSTEOPOROSIS
     Dosage: 35 MG ONCE WEEKLY, ORAL
     Route: 048
     Dates: start: 20120416
  7. MULTIVIT (VITAMINS NOS) [Concomitant]
  8. ERGOCALCIFEROL [Concomitant]
  9. VITAMIN E /00110501/ (TOCOPHEROL) [Concomitant]

REACTIONS (3)
  - EPISTAXIS [None]
  - NASAL DISCOMFORT [None]
  - DRUG DOSE OMISSION [None]
